FAERS Safety Report 7433632-7 (Version None)
Quarter: 2011Q2

REPORT INFORMATION
  Report Type: 
  Country: None (occurrence: None)
  Receive Date: 20110422
  Receipt Date: 20110412
  Transmission Date: 20111010
  Serious: Yes (Hospitalization, Disabling)
  Sender: FDA-Public Use
  Company Number: US-MERCK-1011USA00403

PATIENT
  Age: 72 Year
  Sex: Female

DRUGS (7)
  1. FOSAMAX [Suspect]
     Indication: OSTEOPOROSIS
     Route: 048
     Dates: start: 20020101, end: 20080201
  2. FOSAMAX [Suspect]
     Route: 048
     Dates: start: 20030501, end: 20071226
  3. FOSAMAX [Suspect]
     Route: 048
     Dates: start: 20080301, end: 20100101
  4. FOSAMAX [Suspect]
     Indication: OSTEOPENIA
     Route: 048
     Dates: start: 20020101, end: 20080201
  5. FOSAMAX [Suspect]
     Route: 048
     Dates: start: 20030501, end: 20071226
  6. PRILOSEC [Concomitant]
     Route: 065
     Dates: start: 19900101
  7. ALENDRONATE SODIUM [Suspect]
     Indication: OSTEOPOROSIS
     Route: 048
     Dates: start: 20080401, end: 20080925

REACTIONS (11)
  - HYPERTENSION [None]
  - INSOMNIA [None]
  - HYPOTHYROIDISM [None]
  - ARTHROPATHY [None]
  - CARDIAC DISORDER [None]
  - OSTEOPOROSIS [None]
  - STRESS FRACTURE [None]
  - FEMUR FRACTURE [None]
  - INCISIONAL HERNIA [None]
  - LOW TURNOVER OSTEOPATHY [None]
  - HYPERSENSITIVITY [None]
